FAERS Safety Report 8782728 (Version 1)
Quarter: 2012Q4

REPORT INFORMATION
  Report Type: 
  Country: CA (occurrence: CA)
  Receive Date: 20120913
  Receipt Date: 20120913
  Transmission Date: 20130627
  Serious: Yes (Other)
  Sender: FDA-Public Use
  Company Number: CA-ASTRAZENECA-2012SE69895

PATIENT
  Age: 65 Year
  Sex: Female

DRUGS (5)
  1. NEXIUM [Suspect]
     Indication: GASTROOESOPHAGEAL REFLUX DISEASE
     Route: 048
  2. ACTONEL [Concomitant]
  3. CALCIUM SUPPLEMENT [Concomitant]
  4. VITAMIN D [Concomitant]
  5. MAGNESIUM [Concomitant]

REACTIONS (2)
  - Osteoporosis [Unknown]
  - Basedow^s disease [Unknown]
